FAERS Safety Report 9252115 (Version 4)
Quarter: 2013Q3

REPORT INFORMATION
  Report Type: Report from Study
  Country: US (occurrence: US)
  Receive Date: 20130424
  Receipt Date: 20130828
  Transmission Date: 20140515
  Serious: Yes (Death, Hospitalization)
  Sender: FDA-Public Use
  Company Number: US-ACTELION-A-NJ2013-82284

PATIENT
  Age: 71 Year
  Sex: Female

DRUGS (2)
  1. TRACLEER [Suspect]
     Indication: PULMONARY ARTERIAL HYPERTENSION
     Dosage: UNK
     Route: 048
     Dates: start: 20100511, end: 20130616
  2. ADCIRCA [Concomitant]

REACTIONS (10)
  - Respiratory failure [Fatal]
  - Multi-organ failure [Fatal]
  - Cellulitis [Unknown]
  - Thrombosis [Unknown]
  - Rheumatoid arthritis [Recovering/Resolving]
  - Disease complication [Recovering/Resolving]
  - Psoriasis [Recovering/Resolving]
  - Eczema [Recovering/Resolving]
  - Pain in extremity [Recovering/Resolving]
  - Dyspnoea [Recovering/Resolving]
